FAERS Safety Report 15786424 (Version 1)
Quarter: 2019Q1

REPORT INFORMATION
  Report Type: Spontaneous
  Country: US (occurrence: US)
  Receive Date: 20190103
  Receipt Date: 20190103
  Transmission Date: 20190417
  Serious: Yes (Other)
  Sender: FDA-Public Use
  Company Number: None

PATIENT
  Sex: Male

DRUGS (2)
  1. RISPERDAL [Concomitant]
     Active Substance: RISPERIDONE
  2. INVEGA SUSTENNA [Suspect]
     Active Substance: PALIPERIDONE PALMITATE
     Route: 030
     Dates: start: 20110101, end: 20150101

REACTIONS (4)
  - Weight decreased [None]
  - Hyperprolactinaemia [None]
  - Gynaecomastia [None]
  - Unevaluable event [None]

NARRATIVE: CASE EVENT DATE: 20110101
